FAERS Safety Report 6631478-0 (Version None)
Quarter: 2010Q1

REPORT INFORMATION
  Report Type: 
  Country: None (occurrence: None)
  Receive Date: 20100311
  Receipt Date: 20100311
  Transmission Date: 20100710
  Serious: Yes (Other)
  Sender: FDA-Public Use
  Company Number: None

PATIENT
  Sex: Female
  Weight: 59.8748 kg

DRUGS (4)
  1. ABILIFY [Suspect]
     Indication: BIPOLAR DISORDER
     Dosage: 15 MG. 1 PER DAY PO
     Route: 048
     Dates: start: 20070214, end: 20090415
  2. KEPPRA [Suspect]
     Indication: TARDIVE DYSKINESIA
     Dosage: 500 MG. 2 PER DAY PO
     Route: 048
  3. CLONAZEPAM [Concomitant]
  4. HYDROCODONE [Concomitant]

REACTIONS (5)
  - ABDOMINAL PAIN UPPER [None]
  - ERUCTATION [None]
  - FOOD INTOLERANCE [None]
  - GASTROINTESTINAL DISORDER [None]
  - TARDIVE DYSKINESIA [None]
